FAERS Safety Report 11183574 (Version 1)
Quarter: 2015Q2

REPORT INFORMATION
  Report Type: Report from Study
  Country: FI (occurrence: FI)
  Receive Date: 20150612
  Receipt Date: 20150612
  Transmission Date: 20150821
  Serious: Yes (Death, Hospitalization)
  Sender: FDA-Public Use
  Company Number: FI-ROCHE-1552803

PATIENT
  Age: 67 Year
  Sex: Male

DRUGS (18)
  1. VEMURAFENIB [Suspect]
     Active Substance: VEMURAFENIB
     Indication: MALIGNANT MELANOMA
     Route: 048
  2. VEMURAFENIB [Suspect]
     Active Substance: VEMURAFENIB
     Route: 048
     Dates: end: 20150524
  3. ROFERON-A [Suspect]
     Active Substance: INTERFERON ALFA-2A
     Indication: MALIGNANT MELANOMA
     Dosage: 3 MILLION IU
     Route: 058
     Dates: end: 20150306
  4. SIMVASTATIN. [Concomitant]
     Active Substance: SIMVASTATIN
     Route: 048
  5. KALCIPOS-D [Concomitant]
     Active Substance: CALCIUM CARBONATE\CHOLECALCIFEROL
     Route: 048
  6. ORLOC [Concomitant]
     Active Substance: BISOPROLOL FUMARATE
     Route: 048
  7. PREDNISON [Concomitant]
     Active Substance: PREDNISONE
     Route: 048
  8. OXYCONTIN [Concomitant]
     Active Substance: OXYCODONE HYDROCHLORIDE
     Route: 048
  9. VEMURAFENIB [Suspect]
     Active Substance: VEMURAFENIB
     Route: 048
  10. TEMODAL [Suspect]
     Active Substance: TEMOZOLOMIDE
     Indication: MALIGNANT MELANOMA
     Route: 048
  11. LOSATRIX COMP [Concomitant]
     Route: 048
  12. KALEORID [Concomitant]
     Active Substance: POTASSIUM CHLORIDE
     Route: 048
  13. LOMUSTINE. [Suspect]
     Active Substance: LOMUSTINE
     Indication: MALIGNANT MELANOMA
     Route: 048
  14. EZETROL [Concomitant]
     Active Substance: EZETIMIBE
     Route: 048
  15. KLEXANE [Concomitant]
     Active Substance: ENOXAPARIN
     Route: 058
  16. FURESIS [Concomitant]
     Active Substance: FUROSEMIDE
     Route: 048
  17. ONCOVIN [Suspect]
     Active Substance: VINCRISTINE SULFATE
     Indication: MALIGNANT MELANOMA
     Route: 042
  18. EMGESAN [Concomitant]
     Route: 048

REACTIONS (6)
  - Renal failure [Recovered/Resolved]
  - Eosinophilia [Unknown]
  - Hypomagnesaemia [Recovered/Resolved]
  - Erythema [Recovering/Resolving]
  - Renal failure [Fatal]
  - Hypotonia [Recovered/Resolved]

NARRATIVE: CASE EVENT DATE: 20150313
